FAERS Safety Report 5082617-7 (Version None)
Quarter: 2006Q3

REPORT INFORMATION
  Report Type: 
  Country: None (occurrence: None)
  Receive Date: 20060814
  Receipt Date: 20060803
  Transmission Date: 20061208
  Serious: Yes (Hospitalization)
  Sender: FDA-Public Use
  Company Number: 2006-08-0156

PATIENT
  Age: 27 Year
  Sex: Male

DRUGS (2)
  1. TEMODAL [Suspect]
     Indication: GLIOBLASTOMA
     Dosage: 5970 MG ORAL
     Route: 048
     Dates: start: 20060719, end: 20060723
  2. TRILEPTAL [Concomitant]

REACTIONS (3)
  - CONVULSION [None]
  - FEBRILE BONE MARROW APLASIA [None]
  - PYREXIA [None]
